FAERS Safety Report 6761871-7 (Version None)
Quarter: 2010Q2

REPORT INFORMATION
  Report Type: 
  Country: None (occurrence: None)
  Receive Date: 20100609
  Receipt Date: 20100601
  Transmission Date: 20101027
  Serious: Yes (Death, Other)
  Sender: FDA-Public Use
  Company Number: PHHY2010US36510

PATIENT
  Age: 9 Year
  Sex: Male

DRUGS (3)
  1. METHYLPHENIDATE HCL [Suspect]
     Indication: ATTENTION DEFICIT/HYPERACTIVITY DISORDER
     Dosage: UNK
  2. FLUOXETINE [Suspect]
     Dosage: UNK
  3. CLONIDINE [Concomitant]
     Dosage: UNK

REACTIONS (5)
  - CARDIAC ARREST [None]
  - CONVULSION [None]
  - COORDINATION ABNORMAL [None]
  - DISORIENTATION [None]
  - GASTROINTESTINAL TOXICITY [None]
